FAERS Safety Report 20499034 (Version 2)
Quarter: 2022Q3

REPORT INFORMATION
  Report Type: Other
  Country: ES (occurrence: ES)
  Receive Date: 20220222
  Receipt Date: 20220804
  Transmission Date: 20221026
  Serious: Yes (Hospitalization)
  Sender: FDA-Public Use
  Company Number: ES-ROCHE-3017074

PATIENT
  Age: 69 Year
  Sex: Male

DRUGS (2)
  1. RITUXIMAB [Suspect]
     Active Substance: RITUXIMAB
     Indication: Waldenstrom^s macroglobulinaemia
     Route: 065
  2. BENDAMUSTINE [Suspect]
     Active Substance: BENDAMUSTINE
     Indication: Waldenstrom^s macroglobulinaemia
     Route: 065

REACTIONS (5)
  - Agranulocytosis [Recovered/Resolved]
  - Escherichia urinary tract infection [Recovered/Resolved]
  - Bacteraemia [Recovered/Resolved]
  - Sepsis [Recovered/Resolved]
  - Off label use [Unknown]
